FAERS Safety Report 7442276-2 (Version None)
Quarter: 2011Q2

REPORT INFORMATION
  Report Type: 
  Country: None (occurrence: None)
  Receive Date: 20110428
  Receipt Date: 20110419
  Transmission Date: 20111010
  Serious: Yes (Other)
  Sender: FDA-Public Use
  Company Number: IN-SANOFI-AVENTIS-2011SA025088

PATIENT
  Age: 62 Year
  Sex: Female

DRUGS (3)
  1. ANTIINFLAMMATORY/ANTIRHEUMATIC PRODUCTS [Concomitant]
     Route: 065
  2. LEFLUNOMIDE [Suspect]
     Route: 065
  3. CORTICOSTEROID NOS [Concomitant]
     Dosage: SMALL DOSE
     Route: 065

REACTIONS (9)
  - HYPONATRAEMIA [None]
  - GASTROENTERITIS [None]
  - RASH [None]
  - HEPATIC ENZYME INCREASED [None]
  - BLOOD UREA INCREASED [None]
  - PANCYTOPENIA [None]
  - EPISTAXIS [None]
  - CARDIAC FAILURE [None]
  - SEPSIS [None]
